FAERS Safety Report 5423060-8 (Version None)
Quarter: 2007Q3

REPORT INFORMATION
  Report Type: 
  Country: None (occurrence: None)
  Receive Date: 20070821
  Receipt Date: 20070814
  Transmission Date: 20080115
  Serious: Yes (Life-Threatening, Hospitalization)
  Sender: FDA-Public Use
  Company Number: WAES 0708USA01655

PATIENT
  Age: 63 Year
  Sex: Male
  Weight: 95.709 kg

DRUGS (8)
  1. DECADRON [Suspect]
     Dosage: PO
  2. CAP 0683-BLINDED THERAPY UNK [Suspect]
     Indication: NON-SMALL CELL LUNG CANCER
     Dosage: 400 MG/DAILY/PO
     Route: 048
     Dates: start: 20070710, end: 20070719
  3. TAXOL [Suspect]
     Indication: NON-SMALL CELL LUNG CANCER
     Dosage: 440 MG/DAILY/IV
     Route: 042
     Dates: start: 20070712, end: 20070712
  4. CARBOPLATIN [Suspect]
     Indication: NON-SMALL CELL LUNG CANCER
     Dosage: 847 MG/DAILY/IV
     Route: 042
     Dates: start: 20070712, end: 20070712
  5. CARDIZEM CD [Concomitant]
  6. LANOXIN [Concomitant]
  7. ZOLOFT [Concomitant]
  8. PREDNISONE [Concomitant]

REACTIONS (14)
  - ABNORMAL BEHAVIOUR [None]
  - AGGRESSION [None]
  - AGITATION [None]
  - ANGER [None]
  - DELIRIUM [None]
  - DELIRIUM TREMENS [None]
  - DELUSION [None]
  - HALLUCINATION [None]
  - INSOMNIA [None]
  - JUDGEMENT IMPAIRED [None]
  - MANIA [None]
  - PERSONALITY DISORDER [None]
  - PSYCHOTIC DISORDER [None]
  - STRESS [None]
